FAERS Safety Report 10211217 (Version 2)
Quarter: 2014Q2

REPORT INFORMATION
  Report Type: Spontaneous
  Country: FR (occurrence: FR)
  Receive Date: 20140602
  Receipt Date: 20140602
  Transmission Date: 20141212
  Serious: Yes (Life-Threatening)
  Sender: FDA-Public Use
  Company Number: FR-ABBVIE-14K-056-1234446-00

PATIENT
  Age: 60 Year
  Sex: Female
  Weight: 59 kg

DRUGS (1)
  1. CHIROCAINE [Suspect]
     Indication: ANAESTHESIA
     Dosage: TOTAL DOSE OF 265MG
     Route: 058
     Dates: start: 20140425, end: 20140427

REACTIONS (3)
  - Supraventricular tachycardia [Recovered/Resolved]
  - Atrial fibrillation [Recovered/Resolved]
  - Pericardial effusion [Unknown]
